FAERS Safety Report 13895967 (Version 1)
Quarter: 2017Q3

REPORT INFORMATION
  Report Type: Spontaneous
  Country: US (occurrence: US)
  Receive Date: 20170822
  Receipt Date: 20170822
  Transmission Date: 20171127
  Serious: Yes (Other)
  Sender: FDA-Public Use
  Company Number: None

PATIENT
  Sex: Female
  Weight: 77.4 kg

DRUGS (8)
  1. ROSUVASTATIN. [Concomitant]
     Active Substance: ROSUVASTATIN
  2. TOUJEO [Suspect]
     Active Substance: INSULIN GLARGINE
     Indication: DIABETES MELLITUS
     Dosage: OTHER STRENGTH:300;OTHER ROUTE:STOMACH?
     Dates: start: 20161005, end: 20170818
  3. AMLODIPINE [Concomitant]
     Active Substance: AMLODIPINE BESYLATE
  4. HYDRCOD/ACETAM [Concomitant]
  5. XANAX [Concomitant]
     Active Substance: ALPRAZOLAM
  6. ESTRADIOL. [Concomitant]
     Active Substance: ESTRADIOL
  7. CYMBALTA [Concomitant]
     Active Substance: DULOXETINE HYDROCHLORIDE
  8. LISINOPRIL. [Concomitant]
     Active Substance: LISINOPRIL

REACTIONS (6)
  - Paraesthesia [None]
  - Urinary hesitation [None]
  - Diarrhoea [None]
  - Rhinorrhoea [None]
  - Urine flow decreased [None]
  - Therapy cessation [None]

NARRATIVE: CASE EVENT DATE: 20170531
